FAERS Safety Report 7445984-2 (Version None)
Quarter: 2011Q2

REPORT INFORMATION
  Report Type: 
  Country: None (occurrence: None)
  Receive Date: 20110429
  Receipt Date: 20110421
  Transmission Date: 20111010
  Serious: Yes (Death)
  Sender: FDA-Public Use
  Company Number: US-SANOFI-AVENTIS-2011SA025312

PATIENT
  Age: 68 Year
  Sex: Female
  Weight: 90.5 kg

DRUGS (6)
  1. MULTI-VITAMINS [Concomitant]
     Indication: PROPHYLAXIS
     Dosage: 2 TABLETS, 1 IN 1 D
  2. CETIRIZINE HCL [Concomitant]
     Route: 048
     Dates: start: 20100217, end: 20110403
  3. LANTUS [Suspect]
     Indication: TYPE 2 DIABETES MELLITUS
     Dosage: 25 TO 30 UNITS
     Route: 058
     Dates: start: 20000101, end: 20110403
  4. BLINDED THERAPY [Suspect]
     Indication: TYPE 2 DIABETES MELLITUS
     Dosage: 4 TO 8 UNITS
     Route: 058
     Dates: start: 20110217, end: 20110403
  5. PIOGLITAZONE [Concomitant]
     Indication: TYPE 2 DIABETES MELLITUS
     Route: 048
     Dates: start: 20000101, end: 20110403
  6. MULTI-VITAMINS [Concomitant]
     Dosage: 1 TABLET, 1 IN 1 D
     Dates: start: 19900101, end: 20110403

REACTIONS (2)
  - DEATH [None]
  - HYPOGLYCAEMIA [None]
